FAERS Safety Report 6336684-0 (Version None)
Quarter: 2009Q3

REPORT INFORMATION
  Report Type: 
  Country: None (occurrence: None)
  Receive Date: 20090901
  Receipt Date: 20090827
  Transmission Date: 20100115
  Serious: Yes (Hospitalization)
  Sender: FDA-Public Use
  Company Number: FR-MERCK-0908FRA00051

PATIENT
  Age: 75 Year
  Sex: Female

DRUGS (3)
  1. NOROXIN [Suspect]
     Indication: URINARY TRACT INFECTION
     Route: 048
     Dates: start: 20090709, end: 20090712
  2. PEMETREXED DISODIUM [Suspect]
     Indication: LUNG CARCINOMA CELL TYPE UNSPECIFIED STAGE I
     Route: 042
     Dates: start: 20090709, end: 20090709
  3. AMOXICILLIN [Concomitant]
     Route: 048
     Dates: start: 20090705, end: 20090708

REACTIONS (3)
  - PRURITUS [None]
  - RASH MACULO-PAPULAR [None]
  - VULVITIS [None]
